FAERS Safety Report 4686224-7 (Version None)
Quarter: 2005Q2

REPORT INFORMATION
  Report Type: 
  Country: None (occurrence: None)
  Receive Date: 20050606
  Receipt Date: 20050523
  Transmission Date: 20051028
  Serious: Yes (Other)
  Sender: FDA-Public Use
  Company Number: 2005BI003273

PATIENT
  Sex: Female

DRUGS (11)
  1. AVONEX [Suspect]
     Indication: RELAPSING-REMITTING MULTIPLE SCLEROSIS
     Dosage: IM
     Route: 030
     Dates: start: 20020101
  2. NEXIUM [Concomitant]
  3. CELEBREX [Concomitant]
  4. ZOLOFT [Concomitant]
  5. PROVIGIL [Concomitant]
  6. HUMIBID [Concomitant]
  7. REGLAN [Concomitant]
  8. DARVOCET [Concomitant]
  9. ZETIA [Concomitant]
  10. ADVAIR INHALER [Concomitant]
  11. COMBIVENT [Concomitant]

REACTIONS (17)
  - ARTHRALGIA [None]
  - ARTHRITIS [None]
  - ASTHMA [None]
  - BACK PAIN [None]
  - BALANCE DISORDER [None]
  - DEEP VEIN THROMBOSIS [None]
  - DYSPNOEA [None]
  - HYPERLIPIDAEMIA [None]
  - INTERVERTEBRAL DISC DEGENERATION [None]
  - INTESTINAL FUNCTIONAL DISORDER [None]
  - IRRITABLE BOWEL SYNDROME [None]
  - MUSCLE SPASMS [None]
  - OSTEOPOROSIS [None]
  - PAIN IN EXTREMITY [None]
  - RESTLESS LEGS SYNDROME [None]
  - SLEEP APNOEA SYNDROME [None]
  - TREMOR [None]
